FAERS Safety Report 15906724 (Version 1)
Quarter: 2019Q1

REPORT INFORMATION
  Report Type: Spontaneous
  Country: US (occurrence: US)
  Receive Date: 20190204
  Receipt Date: 20190204
  Transmission Date: 20190417
  Serious: No
  Sender: FDA-Public Use
  Company Number: None

PATIENT
  Age: 57 Year
  Sex: Female
  Weight: 85.5 kg

DRUGS (1)
  1. NEUPRO [Suspect]
     Active Substance: ROTIGOTINE
     Indication: RESTLESS LEGS SYNDROME
     Dosage: ?          QUANTITY:1 PATCH(ES);?
     Route: 062
     Dates: start: 20181114

REACTIONS (2)
  - Injection site bruising [None]
  - Injection site pain [None]

NARRATIVE: CASE EVENT DATE: 20190204
